FAERS Safety Report 23534743 (Version 5)
Quarter: 2025Q1

REPORT INFORMATION
  Report Type: Report from Study
  Country: CA (occurrence: CA)
  Receive Date: 20240217
  Receipt Date: 20250321
  Transmission Date: 20250409
  Serious: Yes (Other)
  Sender: CELLTRION
  Company Number: CA-CELLTRION INC.-2023CA023063

PATIENT

DRUGS (23)
  1. ADALIMUMAB-AATY [Suspect]
     Active Substance: ADALIMUMAB-AATY
     Indication: Rheumatoid arthritis
     Dosage: 40 MG, Q2WEEKS
     Route: 058
     Dates: start: 20231109
  2. ADALIMUMAB-AATY [Suspect]
     Active Substance: ADALIMUMAB-AATY
     Dosage: 40 MG, EVERY 14 DAYS
     Route: 058
     Dates: start: 20231109
  3. ADALIMUMAB-AATY [Suspect]
     Active Substance: ADALIMUMAB-AATY
     Dosage: 40 MG, Q2WEEKS
     Route: 058
     Dates: start: 20231221
  4. NAPROXEN [Concomitant]
     Active Substance: NAPROXEN
     Indication: Product used for unknown indication
     Route: 065
  5. PANTOPRAZOLE SODIUM [Concomitant]
     Active Substance: PANTOPRAZOLE SODIUM
     Indication: Product used for unknown indication
     Route: 065
  6. PLAQUENIL [Concomitant]
     Active Substance: HYDROXYCHLOROQUINE SULFATE
     Indication: Product used for unknown indication
     Route: 065
  7. TYLENOL ARTHRITIS PAIN [Concomitant]
     Active Substance: ACETAMINOPHEN
     Indication: Product used for unknown indication
     Route: 065
  8. VITAMIN D NOS [Concomitant]
     Active Substance: CHOLECALCIFEROL\ERGOCALCIFEROL
     Indication: Product used for unknown indication
     Route: 065
  9. VITAMIN B [Concomitant]
     Active Substance: VITAMIN B
  10. HYDROXYCHLOROQUINE SULFATE [Concomitant]
     Active Substance: HYDROXYCHLOROQUINE SULFATE
  11. HYDROXYCHLOROQUINE SULFATE [Concomitant]
     Active Substance: HYDROXYCHLOROQUINE SULFATE
  12. BILASTINE [Concomitant]
     Active Substance: BILASTINE
     Indication: Hypersensitivity
  13. MONTELUKAST [Concomitant]
     Active Substance: MONTELUKAST
     Indication: Hypersensitivity
  14. RYALTRIS [Concomitant]
     Active Substance: MOMETASONE FUROATE MONOHYDRATE\OLOPATADINE HYDROCHLORIDE
     Indication: Sinus disorder
  15. RYALTRIS [Concomitant]
     Active Substance: MOMETASONE FUROATE MONOHYDRATE\OLOPATADINE HYDROCHLORIDE
     Indication: Hypersensitivity
  16. COVID-19 VACCINE [Concomitant]
     Dates: start: 20231215
  17. FOLIC ACID [Concomitant]
     Active Substance: FOLIC ACID
  18. MOMETASONE FUROATE MONOHYDRATE;OLOPATADINE HYDROCHLORIDE [Concomitant]
     Indication: Sinus disorder
  19. MOMETASONE FUROATE MONOHYDRATE;OLOPATADINE HYDROCHLORIDE [Concomitant]
     Indication: Hypersensitivity
  20. MOMETASONE FUROATE MONOHYDRATE;OLOPATADINE HYDROCHLORIDE [Concomitant]
     Indication: Sinus disorder
  21. MOMETASONE FUROATE MONOHYDRATE;OLOPATADINE HYDROCHLORIDE [Concomitant]
     Indication: Hypersensitivity
  22. PANTOPRAZOLE SODIUM [Concomitant]
     Active Substance: PANTOPRAZOLE SODIUM
  23. TYLENOL ARTHRITIS PAIN [Concomitant]
     Active Substance: ACETAMINOPHEN

REACTIONS (12)
  - Immunodeficiency [Unknown]
  - Exposure to SARS-CoV-2 [Unknown]
  - Systemic lupus erythematosus [Unknown]
  - Gastroenteritis listeria [Unknown]
  - Pruritus [Unknown]
  - Rash [Unknown]
  - Urinary tract infection [Unknown]
  - Accidental exposure to product [Unknown]
  - Exposure via skin contact [Unknown]
  - Intentional dose omission [Unknown]
  - Blood uric acid increased [Unknown]
  - Illness [Recovered/Resolved]

NARRATIVE: CASE EVENT DATE: 20231110
